FAERS Safety Report 13262532 (Version 3)
Quarter: 2017Q3

REPORT INFORMATION
  Report Type: Spontaneous
  Country: US (occurrence: US)
  Receive Date: 20170223
  Receipt Date: 20170717
  Transmission Date: 20171127
  Serious: No
  Sender: FDA-Public Use
  Company Number: US-CELGENEUS-USA-2017025147

PATIENT
  Age: 55 Year
  Sex: Female

DRUGS (4)
  1. CLOBETASOL [Concomitant]
     Active Substance: CLOBETASOL
     Indication: ERYTHEMA
  2. CLOBETASOL [Concomitant]
     Active Substance: CLOBETASOL
     Indication: SKIN EXFOLIATION
  3. OTEZLA [Suspect]
     Active Substance: APREMILAST
     Indication: PSORIASIS
     Dosage: 60 MILLIGRAM
     Route: 048
     Dates: start: 20161122
  4. CLOBETASOL [Concomitant]
     Active Substance: CLOBETASOL
     Indication: DRY SKIN
     Route: 065
     Dates: start: 201605

REACTIONS (1)
  - Dry skin [Recovering/Resolving]

NARRATIVE: CASE EVENT DATE: 201702
